FAERS Safety Report 5399096-2 (Version None)
Quarter: 2007Q3

REPORT INFORMATION
  Report Type: 
  Country: None (occurrence: None)
  Receive Date: 20070727
  Receipt Date: 20061207
  Transmission Date: 20080115
  Serious: No
  Sender: FDA-Public Use
  Company Number: A0630770A

PATIENT
  Age: 74 Year
  Sex: Female

DRUGS (9)
  1. LOTRONEX [Suspect]
     Indication: IRRITABLE BOWEL SYNDROME
     Dosage: 1MG TWICE PER DAY
     Route: 048
  2. TIAZAC [Concomitant]
  3. LASIX [Concomitant]
  4. INSULIN [Concomitant]
  5. METFORMIN HCL [Concomitant]
  6. LIPITOR [Concomitant]
  7. ACCUPRIL [Concomitant]
  8. COUMADIN [Concomitant]
  9. ALBUTEROL [Concomitant]

REACTIONS (1)
  - BLOOD CALCIUM INCREASED [None]
